FAERS Safety Report 6570465-8 (Version None)
Quarter: 2010Q1

REPORT INFORMATION
  Report Type: 
  Country: None (occurrence: None)
  Receive Date: 20100204
  Receipt Date: 20090811
  Transmission Date: 20100710
  Serious: No
  Sender: FDA-Public Use
  Company Number: A0798631A

PATIENT
  Age: 41 Year
  Sex: Female

DRUGS (1)
  1. ARIXTRA [Suspect]
     Route: 058
     Dates: start: 20090401

REACTIONS (6)
  - INJECTION SITE HAEMATOMA [None]
  - INJECTION SITE HAEMORRHAGE [None]
  - INJECTION SITE SWELLING [None]
  - INJECTION SITE WARMTH [None]
  - INSOMNIA [None]
  - PAIN [None]
